FAERS Safety Report 4867061-7 (Version None)
Quarter: 2005Q4

REPORT INFORMATION
  Report Type: 
  Country: None (occurrence: None)
  Receive Date: 20051221
  Receipt Date: 20051209
  Transmission Date: 20060501
  Serious: Yes (Other)
  Sender: FDA-Public Use
  Company Number: FRWYE218609DEC05

PATIENT
  Sex: Female

DRUGS (2)
  1. EFFEXOR [Suspect]
     Dosage: 100 MG IN THE MORNING AND 50 MG AT LUNCHTIME ORAL
     Route: 048
     Dates: start: 20050101, end: 20051207
  2. EFFEXOR XR [Suspect]
     Dosage: 37.5 MG 2X PER 1 DAY ORAL
     Route: 048
     Dates: start: 20051208

REACTIONS (1)
  - HYPERSOMNIA [None]
